FAERS Safety Report 8588718-0 (Version None)
Quarter: 2012Q3

REPORT INFORMATION
  Report Type: 
  Country: None (occurrence: None)
  Receive Date: 20120803
  Receipt Date: 20120803
  Transmission Date: 20120928
  Serious: Yes (Hospitalization)
  Sender: FDA-Public Use
  Company Number: None

PATIENT
  Sex: Male
  Weight: 15.9 kg

DRUGS (17)
  1. CEFTAZIDMIE [Concomitant]
  2. ZOFRAN [Concomitant]
  3. CARBOPLATIN [Suspect]
     Dosage: 1088 MG
  4. ALBUMIN [Concomitant]
  5. MORPHINE [Concomitant]
  6. TPN [Concomitant]
  7. ATIVAN [Concomitant]
  8. ARMODAFINIL [Concomitant]
  9. CALCITRIOL [Concomitant]
  10. MELPHALAN HYDROCHLORIDE [Suspect]
     Dosage: 135 MG
  11. LASIX [Concomitant]
  12. VANCOMYCIN [Concomitant]
  13. DIPHENHYDRAMINE HYDROCHLORIDE [Concomitant]
  14. PROTONIX [Concomitant]
  15. ETOPOSIDE [Suspect]
     Dosage: 864 MG
  16. CALCIUM CHLORIDE [Concomitant]
  17. CLINDAMYCIN [Concomitant]

REACTIONS (11)
  - BLOOD CALCIUM INCREASED [None]
  - RENAL FAILURE ACUTE [None]
  - CARDIO-RESPIRATORY ARREST [None]
  - VENOOCCLUSIVE DISEASE [None]
  - ASCITES [None]
  - PYREXIA [None]
  - OLIGURIA [None]
  - MULTI-ORGAN FAILURE [None]
  - MYOCARDIAL ISCHAEMIA [None]
  - PULMONARY OEDEMA [None]
  - HUMAN RHINOVIRUS TEST POSITIVE [None]
